FAERS Safety Report 6424731-7 (Version None)
Quarter: 2009Q4

REPORT INFORMATION
  Report Type: 
  Country: None (occurrence: None)
  Receive Date: 20091103
  Receipt Date: 20091027
  Transmission Date: 20100525
  Serious: Yes (Death)
  Sender: FDA-Public Use
  Company Number: ES-ASTRAZENECA-2009SE20248

PATIENT
  Age: 36 Year
  Sex: Male
  Weight: 78 kg

DRUGS (5)
  1. SEROQUEL [Suspect]
     Route: 048
     Dates: start: 20060801, end: 20060824
  2. SEROQUEL [Suspect]
     Route: 048
     Dates: start: 20060824
  3. LITHIUM CARBONATE [Concomitant]
     Indication: BIPOLAR DISORDER
     Dosage: ONE IN THE MORNING, NONE MIDDAY, ONE IN THE EVENING
     Dates: start: 20060801
  4. TOPAMAX 100 [Concomitant]
     Indication: IMPULSIVE BEHAVIOUR
     Dosage: ONE IN THE EVENING
     Dates: start: 20060801
  5. FLURAZEPAM [Concomitant]
     Indication: INSOMNIA
     Dates: start: 20060801

REACTIONS (1)
  - CARDIO-RESPIRATORY ARREST [None]
